FAERS Safety Report 22605716 (Version 1)
Quarter: 2023Q2

REPORT INFORMATION
  Report Type: Spontaneous
  Country: US (occurrence: US)
  Receive Date: 20230615
  Receipt Date: 20230615
  Transmission Date: 20230722
  Serious: Yes (Other)
  Sender: FDA-Public Use
  Company Number: US-JNJFOC-20230632611

PATIENT
  Age: 41 Year
  Sex: Female

DRUGS (1)
  1. TREMFYA [Suspect]
     Active Substance: GUSELKUMAB
     Indication: Product used for unknown indication
     Dosage: WEEK 0
     Route: 058
     Dates: start: 20201102

REACTIONS (2)
  - Carpal tunnel decompression [Unknown]
  - Illness [Unknown]

NARRATIVE: CASE EVENT DATE: 20230101
